FAERS Safety Report 15371697 (Version 2)
Quarter: 2018Q3

REPORT INFORMATION
  Report Type: Spontaneous
  Country: ID (occurrence: ID)
  Receive Date: 20180911
  Receipt Date: 20180921
  Transmission Date: 20181010
  Serious: Yes (Death, Other)
  Sender: FDA-Public Use
  Company Number: ID-ASTRAZENECA-2018SF15666

PATIENT
  Sex: Female
  Weight: 50 kg

DRUGS (3)
  1. TAGRISSO [Suspect]
     Active Substance: OSIMERTINIB
     Indication: LUNG CANCER METASTATIC
     Route: 048
     Dates: end: 20180827
  2. XANAX [Concomitant]
     Active Substance: ALPRAZOLAM
  3. TAGRISSO [Suspect]
     Active Substance: OSIMERTINIB
     Indication: NON-SMALL CELL LUNG CANCER
     Route: 048
     Dates: end: 20180827

REACTIONS (7)
  - Dysphonia [Fatal]
  - Brain oedema [Unknown]
  - Alopecia [Fatal]
  - Dyspnoea [Fatal]
  - Eye discharge [Fatal]
  - Dysphagia [Fatal]
  - General physical health deterioration [Fatal]
